FAERS Safety Report 9344965 (Version 1)
Quarter: 2013Q2

REPORT INFORMATION
  Report Type: Spontaneous
  Country: ES (occurrence: ES)
  Receive Date: 20130612
  Receipt Date: 20130612
  Transmission Date: 20140414
  Serious: Yes (Hospitalization)
  Sender: FDA-Public Use
  Company Number: PHHY2013ES057383

PATIENT
  Age: 66 Year
  Sex: Male

DRUGS (4)
  1. INDACATEROL [Suspect]
     Indication: CHRONIC OBSTRUCTIVE PULMONARY DISEASE
     Dosage: 150 UG, QD
     Dates: start: 201010, end: 201103
  2. TIOTROPIUM BROMIDE [Concomitant]
     Dosage: 18 UG, QD
     Dates: end: 201010
  3. BUDESONIDE W/FORMOTEROL FUMARATE [Concomitant]
     Dosage: UNK
     Dates: end: 201010
  4. BUDESONIDE W/FORMOTEROL FUMARATE [Concomitant]
     Dosage: UNK

REACTIONS (6)
  - Constipation [Recovered/Resolved]
  - Abdominal pain [Recovered/Resolved]
  - Abdominal distension [Recovered/Resolved]
  - Abdominal tenderness [Recovered/Resolved]
  - Gastrointestinal sounds abnormal [Recovered/Resolved]
  - Flatulence [Recovered/Resolved]
